FAERS Safety Report 19464850 (Version 2)
Quarter: 2021Q2

REPORT INFORMATION
  Report Type: Spontaneous
  Country: US (occurrence: US)
  Receive Date: 20210626
  Receipt Date: 20210626
  Transmission Date: 20210717
  Serious: No
  Sender: FDA-Public Use
  Company Number: US-ABBVIE-21K-163-3937846-00

PATIENT
  Age: 27 Year
  Sex: Male
  Weight: 122.58 kg

DRUGS (3)
  1. COVID?19 VACCINE [Concomitant]
     Dosage: MFR MODERNA
     Route: 030
     Dates: start: 20210203, end: 20210203
  2. COVID?19 VACCINE [Concomitant]
     Indication: COVID-19 IMMUNISATION
     Dosage: MFR MODERNA
     Route: 030
     Dates: start: 20210109, end: 20210109
  3. SKYRIZI [Suspect]
     Active Substance: RISANKIZUMAB-RZAA
     Indication: PSORIASIS
     Route: 058

REACTIONS (4)
  - Wrong technique in product usage process [Recovered/Resolved]
  - Injection site pain [Recovered/Resolved]
  - Injection site papule [Recovered/Resolved]
  - Injection site erythema [Recovered/Resolved]

NARRATIVE: CASE EVENT DATE: 20210531
